FAERS Safety Report 13841031 (Version 1)
Quarter: 2017Q3

REPORT INFORMATION
  Report Type: Report from Study
  Country: US (occurrence: US)
  Receive Date: 20170807
  Receipt Date: 20170807
  Transmission Date: 20171127
  Serious: No
  Sender: FDA-Public Use
  Company Number: PHHY2016US183650

PATIENT

DRUGS (1)
  1. BION TEARS [Suspect]
     Active Substance: DEXTRAN 70\HYPROMELLOSE 2910 (4000 MPA.S)
     Indication: PRODUCT USED FOR UNKNOWN INDICATION
     Route: 065

REACTIONS (11)
  - Dyspepsia [Unknown]
  - Pain in jaw [Unknown]
  - Asthenopia [Unknown]
  - Influenza [Unknown]
  - Hypersensitivity [Unknown]
  - Migraine [Unknown]
  - Nasopharyngitis [Unknown]
  - Dry eye [Unknown]
  - Sensitivity of teeth [Unknown]
  - Gastrooesophageal reflux disease [Unknown]
  - Temporomandibular joint syndrome [Unknown]
